FAERS Safety Report 17944455 (Version 1)
Quarter: 2020Q2

REPORT INFORMATION
  Report Type: Spontaneous
  Country: CN (occurrence: CN)
  Receive Date: 20200625
  Receipt Date: 20200625
  Transmission Date: 20200714
  Serious: Yes (Other)
  Sender: FDA-Public Use
  Company Number: CN-GLAXOSMITHKLINE-CN2020APC104924

PATIENT
  Age: 42 Year
  Sex: Female
  Weight: 65 kg

DRUGS (4)
  1. SERETIDE [Suspect]
     Active Substance: FLUTICASONE PROPIONATE\SALMETEROL XINAFOATE
     Indication: BRONCHITIS CHRONIC
     Dosage: 1 PUFF(S), QD 50/250 UG
     Route: 055
     Dates: start: 202002
  2. SERETIDE [Suspect]
     Active Substance: FLUTICASONE PROPIONATE\SALMETEROL XINAFOATE
     Dosage: 1 PUFF(S), BID 50/250 UG
     Route: 055
     Dates: end: 20200611
  3. YINHUANG [HERBALS] [Suspect]
     Active Substance: HERBALS
     Indication: PHARYNGITIS
     Dosage: UNK
  4. SERETIDE [Suspect]
     Active Substance: FLUTICASONE PROPIONATE\SALMETEROL XINAFOATE
     Dosage: 1 PUFF(S), BID 50/500 UG
     Route: 055
     Dates: start: 20200612

REACTIONS (9)
  - Oropharyngeal blistering [Unknown]
  - Underdose [Recovered/Resolved]
  - Wrong technique in product usage process [Recovered/Resolved]
  - Product dose omission [Unknown]
  - Off label use [Recovered/Resolved]
  - Therapy interrupted [Unknown]
  - Drug ineffective [Not Recovered/Not Resolved]
  - Skin discolouration [Unknown]
  - Product use in unapproved indication [Recovered/Resolved]

NARRATIVE: CASE EVENT DATE: 20200203
